FAERS Safety Report 22055035 (Version 2)
Quarter: 2023Q1

REPORT INFORMATION
  Report Type: Spontaneous
  Country: US (occurrence: US)
  Receive Date: 20230302
  Receipt Date: 20230317
  Transmission Date: 20230417
  Serious: Yes (Death, Hospitalization)
  Sender: FDA-Public Use
  Company Number: US-TEVA-2023-US-2859667

PATIENT
  Age: 71 Year
  Sex: Male

DRUGS (3)
  1. BACLOFEN [Suspect]
     Active Substance: BACLOFEN
     Indication: Parkinson^s disease
     Dosage: 30 MILLIGRAM DAILY; 10 MG THREE TIMES DAILY
     Route: 065
  2. CARBIDOPA\LEVODOPA [Suspect]
     Active Substance: CARBIDOPA\LEVODOPA
     Indication: Parkinson^s disease
     Dosage: 3 DOSAGE FORMS DAILY; LEVODOPA: 100 MG; CARBIDOPA: 25 MG THREE TIMES DAILY
     Route: 065
  3. CARBIDOPA\LEVODOPA [Suspect]
     Active Substance: CARBIDOPA\LEVODOPA
     Dosage: 6 DOSAGE FORMS DAILY; LEVODOPA: 100 MG; CARBIDOPA: 25 MG THREE TIMES DAILY
     Route: 065

REACTIONS (1)
  - Drug ineffective [Fatal]
